FAERS Safety Report 14179077 (Version 2)
Quarter: 2018Q1

REPORT INFORMATION
  Report Type: Spontaneous
  Country: US (occurrence: US)
  Receive Date: 20171110
  Receipt Date: 20180208
  Transmission Date: 20180508
  Serious: Yes (Other)
  Sender: FDA-Public Use
  Company Number: US-BAYER-2017-211260

PATIENT
  Age: 72 Year
  Sex: Male

DRUGS (7)
  1. CIPRO [Suspect]
     Active Substance: CIPROFLOXACIN HYDROCHLORIDE
     Indication: INFECTION
     Dosage: SEVERAL TIMES OVER A PERIOD OF YEARS
  2. CIPRO [Suspect]
     Active Substance: CIPROFLOXACIN HYDROCHLORIDE
     Indication: INFECTION
     Dosage: UNK
     Dates: start: 200709
  3. SIMVASTATIN. [Concomitant]
     Active Substance: SIMVASTATIN
  4. METFORMIN [Concomitant]
     Active Substance: METFORMIN HYDROCHLORIDE
  5. CIPRO [Suspect]
     Active Substance: CIPROFLOXACIN HYDROCHLORIDE
     Indication: PROSTATE INFECTION
     Dosage: UNK
     Dates: start: 2007
  6. ENTRESTO [Suspect]
     Active Substance: SACUBITRIL\VALSARTAN
     Dosage: 24/26 MG, BID
     Dates: start: 201707
  7. NORVASK [Concomitant]
     Active Substance: AMLODIPINE BESYLATE

REACTIONS (6)
  - Blindness transient [Recovered/Resolved]
  - Rheumatoid factor increased [None]
  - Cataract [Recovered/Resolved]
  - Allergic reaction to excipient [None]
  - Atopy [None]
  - Arthralgia [None]

NARRATIVE: CASE EVENT DATE: 200709
